FAERS Safety Report 10334683 (Version 2)
Quarter: 2014Q3

REPORT INFORMATION
  Report Type: Spontaneous
  Country: US (occurrence: None)
  Receive Date: 20140721
  Receipt Date: 20140729
  Transmission Date: 20150326
  Serious: Yes (Other)
  Sender: FDA-Public Use
  Company Number: AUR-APL-2014-07685

PATIENT
  Age: 46 Year
  Sex: Male

DRUGS (2)
  1. RIFAMPICIN (RIFAMPICIN) [Concomitant]
     Active Substance: RIFAMPIN
  2. NAFCILLIN [Suspect]
     Active Substance: NAFCILLIN\NAFCILLIN SODIUM
     Indication: OSTEOMYELITIS

REACTIONS (5)
  - Electrocardiogram T wave amplitude decreased [None]
  - Hypokalaemia [None]
  - Fatigue [None]
  - Ascites [None]
  - Asthenia [None]
